FAERS Safety Report 10262740 (Version 2)
Quarter: 2014Q2

REPORT INFORMATION
  Report Type: Report from Study
  Country: US (occurrence: US)
  Receive Date: 20140626
  Receipt Date: 20140626
  Transmission Date: 20141212
  Serious: Yes (Other)
  Sender: FDA-Public Use
  Company Number: US-MYLANLABS-2013S1013796

PATIENT
  Age: 64 Year
  Sex: Female
  Weight: 89.81 kg

DRUGS (12)
  1. CLOZAPINE TABLETS [Suspect]
     Indication: SCHIZOAFFECTIVE DISORDER DEPRESSIVE TYPE
     Route: 048
     Dates: start: 20130321, end: 20130711
  2. PRILOSEC [Concomitant]
     Dates: start: 20130320
  3. COGENTIN [Concomitant]
     Dates: start: 20130320
  4. CLONAZEPAM [Concomitant]
     Dates: start: 20130320
  5. NAPROXEN [Concomitant]
     Dates: start: 20130320
  6. MIRALAX /00754501/ [Concomitant]
     Dates: start: 20130320
  7. TRAZODONE [Concomitant]
     Dates: start: 20130320
  8. ROBAXIN [Concomitant]
     Dates: start: 20130320
  9. LORTAB [Concomitant]
     Dates: start: 20130321
  10. LASIX [Concomitant]
     Dates: start: 20130412
  11. IRON [Concomitant]
     Dates: start: 20130520
  12. COUMADIN [Concomitant]
     Dates: start: 20130320

REACTIONS (1)
  - Granulocytopenia [Recovered/Resolved]
